FAERS Safety Report 21810232 (Version 1)
Quarter: 2022Q4

REPORT INFORMATION
  Report Type: Spontaneous
  Country: US (occurrence: None)
  Receive Date: 20221231
  Receipt Date: 20221231
  Transmission Date: 20230112
  Serious: Yes (Hospitalization)
  Sender: FDA-Public Use
  Company Number: None

PATIENT
  Age: 78 Year
  Sex: Male
  Weight: 85.5 kg

DRUGS (1)
  1. BEBTELOVIMAB [Suspect]
     Active Substance: BEBTELOVIMAB
     Indication: COVID-19
     Dosage: OTHER FREQUENCY : ONCE;?
     Route: 041
     Dates: start: 20220915, end: 20220915

REACTIONS (8)
  - Chills [None]
  - Pyrexia [None]
  - Asthenia [None]
  - Mobility decreased [None]
  - Pain [None]
  - Disturbance in attention [None]
  - Hypophosphataemia [None]
  - Heart rate decreased [None]

NARRATIVE: CASE EVENT DATE: 20220915
